FAERS Safety Report 5015733-6 (Version None)
Quarter: 2006Q2

REPORT INFORMATION
  Report Type: 
  Country: None (occurrence: None)
  Receive Date: 20060419
  Receipt Date: 20060209
  Transmission Date: 20061013
  Serious: No
  Sender: FDA-Public Use
  Company Number: 2006-00522

PATIENT
  Age: 27 Year
  Sex: Female

DRUGS (7)
  1. FERRLECIT [Suspect]
     Indication: IRON DEFICIENCY ANAEMIA
     Dosage: 1-2 ML OVER 1-2 MIN INTO HD, INTRAVENOUS
     Route: 042
     Dates: start: 20060126, end: 20060126
  2. ANTIHYPERTENSIVES [Suspect]
     Indication: HYPERTENSION
  3. EPOGEN [Concomitant]
  4. ZEMPLAR [Concomitant]
  5. HEPARIN [Concomitant]
  6. VITAMIN D [Concomitant]
  7. ACTIVASE [Concomitant]

REACTIONS (4)
  - ANAPHYLACTIC REACTION [None]
  - ANXIETY [None]
  - DYSPNOEA [None]
  - HYPOTENSION [None]
